FAERS Safety Report 7901181-5 (Version None)
Quarter: 2011Q4

REPORT INFORMATION
  Report Type: 
  Country: None (occurrence: None)
  Receive Date: 20111108
  Receipt Date: 20111025
  Transmission Date: 20120403
  Serious: Yes (Hospitalization, Other)
  Sender: FDA-Public Use
  Company Number: US-ELI_LILLY_AND_COMPANY-US201011002411

PATIENT
  Sex: Female

DRUGS (3)
  1. FORTEO [Suspect]
     Dosage: 20 UG, QD
     Route: 065
  2. FORTEO [Suspect]
     Dosage: 20 UG, QD
     Route: 065
  3. FORTEO [Suspect]
     Indication: OSTEOPOROSIS
     Dosage: 20 UG, QD
     Route: 065
     Dates: start: 20101101

REACTIONS (15)
  - DYSSTASIA [None]
  - NEPHROLITHIASIS [None]
  - DIZZINESS [None]
  - URINARY INCONTINENCE [None]
  - SURGERY [None]
  - DRUG DOSE OMISSION [None]
  - PRURITUS GENERALISED [None]
  - OEDEMA PERIPHERAL [None]
  - GENERAL PHYSICAL HEALTH DETERIORATION [None]
  - ESCHERICHIA URINARY TRACT INFECTION [None]
  - ASTHENIA [None]
  - INCOHERENT [None]
  - INJECTION SITE DYSAESTHESIA [None]
  - PYREXIA [None]
  - URINARY TRACT INFECTION ENTEROCOCCAL [None]
